FAERS Safety Report 7562882-4 (Version None)
Quarter: 2011Q2

REPORT INFORMATION
  Report Type: 
  Country: None (occurrence: None)
  Receive Date: 20110622
  Receipt Date: 20110610
  Transmission Date: 20111010
  Serious: Yes (Hospitalization, Other)
  Sender: FDA-Public Use
  Company Number: JP-PFIZER INC-2011118917

PATIENT
  Age: 68 Year
  Sex: Male
  Weight: 56.9 kg

DRUGS (20)
  1. TRICHLORMETHIAZIDE [Suspect]
     Dosage: UNK
     Route: 048
     Dates: start: 20101201
  2. PLAVIX [Suspect]
     Indication: PERCUTANEOUS CORONARY INTERVENTION
  3. CARVEDILOL [Suspect]
     Indication: PERCUTANEOUS CORONARY INTERVENTION
  4. LIPITOR [Suspect]
     Indication: HYPERLIPIDAEMIA
  5. LASIX [Suspect]
     Indication: PERCUTANEOUS CORONARY INTERVENTION
  6. CARVEDILOL [Suspect]
     Indication: MYOCARDIAL INFARCTION
     Dosage: 1.25 MG, 2X/DAY
     Route: 048
  7. SIGMART [Suspect]
     Indication: PERCUTANEOUS CORONARY INTERVENTION
  8. LIPITOR [Suspect]
     Indication: MYOCARDIAL INFARCTION
     Dosage: 10 MG, UID/QD
     Route: 048
     Dates: start: 20101201
  9. LASIX [Suspect]
     Indication: MYOCARDIAL INFARCTION
     Dosage: 40 MG, 2X/DAY
     Route: 048
  10. PLAVIX [Suspect]
     Indication: MYOCARDIAL INFARCTION
     Dosage: UNK
     Route: 048
     Dates: start: 20101201, end: 20110407
  11. PLAVIX [Suspect]
     Indication: POLYURIA
  12. CARVEDILOL [Suspect]
     Indication: ARRHYTHMIA
  13. ASPIRIN [Suspect]
     Indication: MYOCARDIAL INFARCTION
     Dosage: 100 MG, UID/QD
     Route: 048
  14. LANSOPRAZOLE [Suspect]
     Indication: MYOCARDIAL INFARCTION
     Dosage: 15 MG, UID/QD
     Route: 048
     Dates: start: 20101201, end: 20110407
  15. LANSOPRAZOLE [Suspect]
     Indication: PERCUTANEOUS CORONARY INTERVENTION
  16. SIGMART [Suspect]
     Indication: MYOCARDIAL INFARCTION
     Dosage: 10 MG, 2X/DAY
     Route: 048
  17. LASIX [Suspect]
     Indication: POLYURIA
  18. ASPIRIN [Suspect]
     Indication: PERCUTANEOUS CORONARY INTERVENTION
  19. LIPITOR [Suspect]
     Indication: PERCUTANEOUS CORONARY INTERVENTION
  20. LANSOPRAZOLE [Suspect]
     Indication: PROPHYLAXIS AGAINST GASTROINTESTINAL ULCER

REACTIONS (1)
  - INTERSTITIAL LUNG DISEASE [None]
